FAERS Safety Report 7154810-0 (Version None)
Quarter: 2010Q4

REPORT INFORMATION
  Report Type: 
  Country: None (occurrence: None)
  Receive Date: 20101214
  Receipt Date: 20091109
  Transmission Date: 20110411
  Serious: Yes (Hospitalization, Other)
  Sender: FDA-Public Use
  Company Number: US-AMGEN-QUU341873

PATIENT

DRUGS (6)
  1. ENBREL [Suspect]
     Indication: RHEUMATOID ARTHRITIS
     Dosage: 25 MG, 2 TIMES/WK
     Route: 058
     Dates: start: 20020901
  2. GLUCOSAMINE [Concomitant]
  3. ESOMEPRAZOLE MAGNESIUM [Concomitant]
  4. CALCIUM [Concomitant]
  5. NABUMETONE [Concomitant]
  6. VALACYCLOVIR HYDROCHLORIDE [Concomitant]
     Dosage: UNK UNK, PRN

REACTIONS (7)
  - ABSCESS LIMB [None]
  - BRONCHITIS [None]
  - CELLULITIS [None]
  - LOCALISED INFECTION [None]
  - NASOPHARYNGITIS [None]
  - STAPHYLOCOCCAL INFECTION [None]
  - UPPER RESPIRATORY TRACT INFECTION [None]
